FAERS Safety Report 18944123 (Version 6)
Quarter: 2021Q2

REPORT INFORMATION
  Report Type: Report from Study
  Country: ES (occurrence: ES)
  Receive Date: 20210226
  Receipt Date: 20210615
  Transmission Date: 20210717
  Serious: Yes (Other)
  Sender: FDA-Public Use
  Company Number: ES-ROCHE-2775047

PATIENT
  Age: 31 Year
  Sex: Female
  Weight: 57 kg

DRUGS (54)
  1. TIRAGOLUMAB. [Suspect]
     Active Substance: TIRAGOLUMAB
     Indication: CERVIX CARCINOMA
     Dosage: DOSE LAST STUDY DRUG ADMIN PRIOR AE IS 600 MG.?START DATE OF MOST RECENT DOSE OF STUDY DRUG PRIOR TO
     Route: 042
     Dates: start: 20210204
  2. METHYLPREDNISOLONE. [Concomitant]
     Active Substance: METHYLPREDNISOLONE
     Route: 042
     Dates: start: 20210224, end: 20210226
  3. PREDNISONE. [Concomitant]
     Active Substance: PREDNISONE
     Route: 048
     Dates: start: 20210226, end: 20210301
  4. ACETAMINOPHEN. [Concomitant]
     Active Substance: ACETAMINOPHEN
     Indication: PYREXIA
     Dates: start: 20210217, end: 20210217
  5. DEXCHLORPHENIRAMINE [Concomitant]
     Active Substance: DEXCHLORPHENIRAMINE
     Indication: HEPATITIS
     Route: 042
     Dates: start: 20210220, end: 20210223
  6. HALOPERIDOL. [Concomitant]
     Active Substance: HALOPERIDOL
     Indication: HEPATITIS
     Route: 058
     Dates: start: 20210225, end: 20210302
  7. IBUPROFEN. [Concomitant]
     Active Substance: IBUPROFEN
     Indication: HEPATITIS
     Route: 048
     Dates: start: 20210226, end: 20210302
  8. METAMIZOLE [Concomitant]
     Active Substance: METAMIZOLE
     Indication: HEPATITIS
     Route: 042
     Dates: start: 20210217, end: 20210217
  9. AMLODIPINO [Concomitant]
     Active Substance: AMLODIPINE BESYLATE
     Indication: HEPATITIS
     Route: 048
     Dates: start: 20210217, end: 20210219
  10. VANCOMYCIN [Concomitant]
     Active Substance: VANCOMYCIN
     Route: 042
     Dates: start: 20210302, end: 20210304
  11. LEVETIRACETAM. [Concomitant]
     Active Substance: LEVETIRACETAM
     Indication: HEPATITIS
     Route: 042
     Dates: start: 20210219, end: 20210304
  12. AMPICILLIN [Concomitant]
     Active Substance: AMPICILLIN
     Route: 042
     Dates: start: 20210219, end: 20210304
  13. ACICLOVIR [Concomitant]
     Active Substance: ACYCLOVIR
     Indication: HEPATITIS
     Route: 042
     Dates: start: 20210219, end: 20210219
  14. METHYLPREDNISOLON [Concomitant]
     Active Substance: METHYLPREDNISOLONE
     Indication: HEPATITIS
     Route: 042
     Dates: start: 20210224, end: 20210226
  15. METHYLPREDNISOLONE. [Concomitant]
     Active Substance: METHYLPREDNISOLONE
     Route: 042
     Dates: start: 20210217, end: 20210219
  16. AMPICILLIN [Concomitant]
     Active Substance: AMPICILLIN
     Indication: HEPATITIS
     Route: 042
     Dates: start: 20210219, end: 20210219
  17. CALCIUM [Concomitant]
     Active Substance: CALCIUM
     Indication: HEPATITIS
     Route: 048
     Dates: start: 20210301, end: 20210304
  18. CHOLECALCIFEROL [Concomitant]
     Active Substance: CHOLECALCIFEROL
     Indication: HEPATITIS
     Route: 048
     Dates: start: 20210301, end: 20210304
  19. VITAMIN D3 [Concomitant]
     Active Substance: CHOLECALCIFEROL
     Indication: HEPATITIS
     Route: 048
     Dates: start: 20210304
  20. PREDNISONE. [Concomitant]
     Active Substance: PREDNISONE
     Indication: HEPATITIS
     Route: 048
     Dates: start: 20210115
  21. METHOCLOPRAMIDE [Concomitant]
     Active Substance: METOCLOPRAMIDE HYDROCHLORIDE
     Indication: HEPATITIS
     Route: 042
     Dates: start: 20210217, end: 20210302
  22. TRIMETHOPRIM. [Concomitant]
     Active Substance: TRIMETHOPRIM
     Indication: HEPATITIS
     Route: 048
     Dates: start: 20210304
  23. METHYLPREDNISOLONE. [Concomitant]
     Active Substance: METHYLPREDNISOLONE
     Indication: HEPATITIS
     Route: 042
     Dates: start: 20210215, end: 20210215
  24. METHYLPREDNISOLONE. [Concomitant]
     Active Substance: METHYLPREDNISOLONE
     Route: 042
     Dates: start: 20210219, end: 20210223
  25. TRIMETHOPRIM SULFAMETHOXAZOLE [Concomitant]
     Active Substance: SULFAMETHOXAZOLE\TRIMETHOPRIM
     Indication: HEPATITIS
     Route: 042
     Dates: start: 20210217, end: 20210304
  26. ACETAMINOPHEN. [Concomitant]
     Active Substance: ACETAMINOPHEN
     Indication: HEPATITIS
     Route: 042
     Dates: start: 20210217, end: 20210226
  27. ACETAMINOPHEN. [Concomitant]
     Active Substance: ACETAMINOPHEN
     Route: 048
     Dates: start: 20210204
  28. OMEPRAZOLE. [Concomitant]
     Active Substance: OMEPRAZOLE
     Indication: HEPATITIS
     Route: 048
     Dates: start: 20210217, end: 20210219
  29. AMLODIPINO [Concomitant]
     Active Substance: AMLODIPINE BESYLATE
     Route: 048
     Dates: start: 20210225, end: 20210304
  30. CEFTRIAXONE. [Concomitant]
     Active Substance: CEFTRIAXONE
     Indication: HEPATITIS
     Route: 042
     Dates: start: 20210219, end: 20210221
  31. CALCIUM [Concomitant]
     Active Substance: CALCIUM
     Route: 048
     Dates: start: 20210304
  32. ATEZOLIZUMAB. [Suspect]
     Active Substance: ATEZOLIZUMAB
     Indication: CERVIX CARCINOMA
     Dosage: DOSE LAST STUDY DRUG ADMIN PRIOR AE IS 1200 MG?START DATE OF MOST RECENT DOSE OF STUDY DRUG PRIOR TO
     Route: 041
     Dates: start: 20210204
  33. METHYLPREDNISOLONE. [Concomitant]
     Active Substance: METHYLPREDNISOLONE
     Route: 042
     Dates: start: 20210219, end: 20210219
  34. PANTOPRAZOLE [Concomitant]
     Active Substance: PANTOPRAZOLE
     Indication: HEPATITIS
     Route: 042
     Dates: start: 20210219, end: 20210226
  35. ACETAMINOPHEN. [Concomitant]
     Active Substance: ACETAMINOPHEN
     Route: 048
     Dates: start: 20210226, end: 20210304
  36. VANCOMYCIN [Concomitant]
     Active Substance: VANCOMYCIN
     Indication: HEPATITIS
     Route: 042
     Dates: start: 20210219, end: 20210219
  37. FUROSEMIDE. [Concomitant]
     Active Substance: FUROSEMIDE
     Indication: HEPATITIS
     Route: 042
     Dates: start: 20210225, end: 20210226
  38. ENOXAPARIN SODIUM. [Concomitant]
     Active Substance: ENOXAPARIN SODIUM
     Indication: HEPATITIS
     Route: 058
     Dates: start: 20210217, end: 20210304
  39. REMIFENTANIL [Concomitant]
     Active Substance: REMIFENTANIL
     Indication: HEPATITIS
     Route: 042
     Dates: start: 20210219, end: 20210223
  40. DEXKETOPROFEN [Concomitant]
     Active Substance: DEXKETOPROFEN
     Indication: PAIN
  41. PREDNISONE. [Concomitant]
     Active Substance: PREDNISONE
     Route: 048
     Dates: start: 20210304
  42. PROPOFOL. [Concomitant]
     Active Substance: PROPOFOL
     Indication: HEPATITIS
     Route: 042
     Dates: start: 20210219, end: 20210223
  43. ONDANSETRON [Concomitant]
     Active Substance: ONDANSETRON
     Indication: HEPATITIS
     Route: 042
     Dates: start: 20210219, end: 20210219
  44. LEVETIRACETAM. [Concomitant]
     Active Substance: LEVETIRACETAM
     Route: 048
     Dates: start: 20210304
  45. IMMUNOGLOBULIN G HUMAN [Concomitant]
     Active Substance: HUMAN IMMUNOGLOBULIN G
     Route: 042
     Dates: start: 20210219, end: 20210224
  46. HALOPERIDOL. [Concomitant]
     Active Substance: HALOPERIDOL
     Route: 058
     Dates: start: 20210225, end: 20210225
  47. PREDNISONE. [Concomitant]
     Active Substance: PREDNISONE
     Route: 048
     Dates: start: 20210226, end: 20210304
  48. OMEPRAZOLE. [Concomitant]
     Active Substance: OMEPRAZOLE
     Route: 048
     Dates: start: 20210226, end: 20210304
  49. AMLODIPINO [Concomitant]
     Active Substance: AMLODIPINE BESYLATE
     Route: 048
     Dates: start: 20210304
  50. MACROGOL [Concomitant]
     Active Substance: POLYETHYLENE GLYCOLS
     Indication: HEPATITIS
     Route: 048
     Dates: start: 20210218, end: 20210304
  51. VANCOMYCIN [Concomitant]
     Active Substance: VANCOMYCIN
     Route: 048
     Dates: start: 20210304
  52. FUROSEMIDE. [Concomitant]
     Active Substance: FUROSEMIDE
     Route: 042
     Dates: start: 20210302, end: 20210304
  53. FUROSEMIDE. [Concomitant]
     Active Substance: FUROSEMIDE
     Route: 048
     Dates: start: 20210304
  54. SULFAMETHOXAZOLE [Concomitant]
     Active Substance: SULFAMETHOXAZOLE
     Indication: HEPATITIS
     Route: 048
     Dates: start: 20210204

REACTIONS (1)
  - Raynaud^s phenomenon [Recovered/Resolved with Sequelae]

NARRATIVE: CASE EVENT DATE: 20210211
